FAERS Safety Report 7821865-7 (Version None)
Quarter: 2011Q4

REPORT INFORMATION
  Report Type: 
  Country: None (occurrence: None)
  Receive Date: 20111018
  Receipt Date: 20110628
  Transmission Date: 20120403
  Serious: No
  Sender: FDA-Public Use
  Company Number: US-ASTRAZENECA-2011SE38804

PATIENT
  Age: 55 Year
  Sex: Male
  Weight: 124.7 kg

DRUGS (1)
  1. SYMBICORT [Suspect]
     Dosage: 80 4.5
     Route: 055

REACTIONS (2)
  - RASH MACULAR [None]
  - CONTUSION [None]
